FAERS Safety Report 18865026 (Version 1)
Quarter: 2021Q1

REPORT INFORMATION
  Report Type: Spontaneous
  Country: CA (occurrence: CA)
  Receive Date: 20210209
  Receipt Date: 20210209
  Transmission Date: 20210420
  Serious: Yes (Other)
  Sender: FDA-Public Use
  Company Number: CA-BAYER-2021-051654

PATIENT
  Age: 37 Year
  Sex: Female
  Weight: 75.28 kg

DRUGS (1)
  1. JAYDESS [Suspect]
     Active Substance: LEVONORGESTREL
     Indication: CONTRACEPTION
     Dosage: 14 ?G PER DAY CONTINUOUSLY
     Route: 015

REACTIONS (3)
  - Pain [Recovered/Resolved]
  - Condition aggravated [Recovered/Resolved]
  - Migraine [Recovered/Resolved]
